FAERS Safety Report 8135971-3 (Version None)
Quarter: 2012Q1

REPORT INFORMATION
  Report Type: 
  Country: None (occurrence: None)
  Receive Date: 20120214
  Receipt Date: 20120207
  Transmission Date: 20120608
  Serious: Yes (Hospitalization)
  Sender: FDA-Public Use
  Company Number: US-BAYER-2011-108050

PATIENT
  Age: 23 Year
  Sex: Female

DRUGS (9)
  1. DESOXIMETASONE [Concomitant]
     Dosage: UNK
     Dates: start: 20030516
  2. EFFEXOR XR [Concomitant]
     Dosage: UNK
     Dates: start: 20030520, end: 20050522
  3. CIPROFLOXACIN [Concomitant]
     Dosage: 500 MG, UNK
     Dates: start: 20030516
  4. YAZ [Suspect]
     Dosage: UNK
     Route: 048
     Dates: start: 20030501, end: 20030701
  5. YASMIN [Suspect]
     Dosage: UNK
     Route: 048
     Dates: start: 20030501, end: 20030701
  6. VENLAFAXINE [Concomitant]
     Dosage: 75 MG, UNK
     Dates: start: 20030516
  7. LIDEX [Concomitant]
     Dosage: UNK
     Dates: start: 20030516
  8. AUGMENTIN '125' [Concomitant]
     Dosage: 500 MG, BID DAILY
     Dates: start: 20030609
  9. NAPROSYN [Concomitant]
     Dosage: UNK
     Dates: start: 20030628

REACTIONS (6)
  - INJURY [None]
  - PULMONARY EMBOLISM [None]
  - PAIN [None]
  - GENERAL PHYSICAL HEALTH DETERIORATION [None]
  - ANXIETY [None]
  - EMOTIONAL DISTRESS [None]
